FAERS Safety Report 6029462-3 (Version None)
Quarter: 2008Q4

REPORT INFORMATION
  Report Type: 
  Country: None (occurrence: None)
  Receive Date: 20081222
  Receipt Date: 20080903
  Transmission Date: 20090506
  Serious: No
  Sender: FDA-Public Use
  Company Number: ALL1-2008-01905

PATIENT
  Age: 6 Year
  Sex: Male
  Weight: 23.6 kg

DRUGS (6)
  1. VYVANSE [Suspect]
     Indication: ATTENTION DEFICIT/HYPERACTIVITY DISORDER
     Dosage: 30 MG, 1X/DAY:QD, ORAL
     Route: 048
     Dates: start: 20080301
  2. LEXAPRO [Concomitant]
  3. TENEX [Concomitant]
  4. SINGULAIR /01362601/ (MONTELUKAST) [Concomitant]
  5. RISPERDAL [Concomitant]
  6. FOCALIN [Concomitant]

REACTIONS (5)
  - ABNORMAL BEHAVIOUR [None]
  - FATIGUE [None]
  - IRRITABILITY [None]
  - SOMNOLENCE [None]
  - THERAPEUTIC RESPONSE DELAYED [None]
